FAERS Safety Report 23768663 (Version 1)
Quarter: 2024Q2

REPORT INFORMATION
  Report Type: Spontaneous
  Country: US (occurrence: None)
  Receive Date: 20240420
  Receipt Date: 20240420
  Transmission Date: 20240716
  Serious: Yes (Hospitalization)
  Sender: FDA-Public Use
  Company Number: None

PATIENT
  Age: 70 Year
  Sex: Male
  Weight: 89 kg

DRUGS (3)
  1. APIXABAN [Suspect]
     Active Substance: APIXABAN
     Indication: Atrial fibrillation
     Route: 048
     Dates: start: 20230407
  2. APIXABAN [Suspect]
     Active Substance: APIXABAN
     Indication: Deep vein thrombosis
  3. NAPROXEN SODIUM [Suspect]
     Active Substance: NAPROXEN\NAPROXEN SODIUM
     Dates: start: 20230527

REACTIONS (9)
  - Anaemia [None]
  - Haemorrhage [None]
  - Dyspnoea exertional [None]
  - Melaena [None]
  - Gastric mucosa erythema [None]
  - Gastrointestinal disorder [None]
  - Gastrointestinal mucosa hyperaemia [None]
  - Duodenal ulcer [None]
  - Therapy interrupted [None]

NARRATIVE: CASE EVENT DATE: 20230604
